FAERS Safety Report 23892171 (Version 1)
Quarter: 2024Q2

REPORT INFORMATION
  Report Type: Spontaneous
  Country: US (occurrence: None)
  Receive Date: 20240524
  Receipt Date: 20240524
  Transmission Date: 20240715
  Serious: No
  Sender: FDA-Public Use
  Company Number: US-ROCHE-3475897

PATIENT
  Sex: Female

DRUGS (1)
  1. ACTEMRA [Suspect]
     Active Substance: TOCILIZUMAB
     Indication: Giant cell arteritis
     Dosage: 200MG/10ML
     Route: 042
     Dates: start: 202309

REACTIONS (3)
  - Trichorrhexis [Unknown]
  - Alopecia [Unknown]
  - Off label use [Unknown]
